FAERS Safety Report 6670795-5 (Version None)
Quarter: 2010Q2

REPORT INFORMATION
  Report Type: 
  Country: None (occurrence: None)
  Receive Date: 20100407
  Receipt Date: 20100322
  Transmission Date: 20101027
  Serious: No
  Sender: FDA-Public Use
  Company Number: US-B.I. PHARMACEUTICALS,INC./RIDGEFIELD-2010-BP-03364BP

PATIENT
  Sex: Female

DRUGS (2)
  1. SPIRIVA [Suspect]
     Indication: CHRONIC OBSTRUCTIVE PULMONARY DISEASE
     Dosage: 18 MCG
     Route: 055
     Dates: start: 20080101, end: 20100312
  2. AZOR [Concomitant]
     Indication: HYPERTENSION

REACTIONS (5)
  - EYE DISORDER [None]
  - HERPES ZOSTER [None]
  - NERVE INJURY [None]
  - VISION BLURRED [None]
  - VISUAL ACUITY REDUCED [None]
